FAERS Safety Report 15421235 (Version 7)
Quarter: 2020Q1

REPORT INFORMATION
  Report Type: Report from Study
  Country: US (occurrence: US)
  Receive Date: 20180924
  Receipt Date: 20200326
  Transmission Date: 20200409
  Serious: Yes (Hospitalization, Other)
  Sender: FDA-Public Use
  Company Number: US-ACTELION-A-NJ2018-179205

PATIENT
  Age: 57 Year
  Sex: Female
  Weight: 111.11 kg

DRUGS (3)
  1. UPTRAVI [Suspect]
     Active Substance: SELEXIPAG
     Indication: PULMONARY ARTERIAL HYPERTENSION
     Dosage: 1600 MCG, BID
     Route: 048
  2. OPSUMIT [Suspect]
     Active Substance: MACITENTAN
     Indication: PULMONARY ARTERIAL HYPERTENSION
     Dosage: 10 MG, QD
     Route: 048
  3. ELIQUIS [Concomitant]
     Active Substance: APIXABAN

REACTIONS (12)
  - Dysarthria [Unknown]
  - Syncope [Unknown]
  - Dialysis [Unknown]
  - Decreased appetite [Unknown]
  - Pain in jaw [Unknown]
  - Blood pressure decreased [Unknown]
  - Hospitalisation [Unknown]
  - Oxygen saturation decreased [Unknown]
  - Lyme disease [Unknown]
  - Fatigue [Unknown]
  - Blood glucose increased [Unknown]
  - Fistula [Unknown]

NARRATIVE: CASE EVENT DATE: 20180831
